FAERS Safety Report 25738001 (Version 3)
Quarter: 2025Q4

REPORT INFORMATION
  Report Type: Report from Study
  Country: CA (occurrence: CA)
  Receive Date: 20250829
  Receipt Date: 20251230
  Transmission Date: 20260118
  Serious: Yes (Other)
  Sender: CELLTRION
  Company Number: CA-CELLTRION INC.-2025CA023213

PATIENT

DRUGS (4)
  1. INFLIXIMAB-DYYB [Suspect]
     Active Substance: INFLIXIMAB-DYYB
     Indication: Colitis ulcerative
     Dosage: MAINTENANCE - 500 MG - IV - EVERY 6 WEEKS
     Route: 042
     Dates: start: 20250709
  2. INFLIXIMAB-DYYB [Suspect]
     Active Substance: INFLIXIMAB-DYYB
     Dosage: MAINTENANCE - 500 MG - IV (INTRAVENOUS) EVERY 6 WEEKS
     Route: 042
     Dates: start: 20250709
  3. INFLIXIMAB-DYYB [Suspect]
     Active Substance: INFLIXIMAB-DYYB
     Dosage: MAINTENANCE- 500 MG (INTRAVENOUS) EVERY 6 WEEKS
     Route: 042
     Dates: start: 20251112
  4. INFLIXIMAB-DYYB [Suspect]
     Active Substance: INFLIXIMAB-DYYB
     Dosage: MAINTENANCE- 500 MG (INTRAVENOUS) EVERY 6 WEEKS
     Route: 042
     Dates: start: 20251222

REACTIONS (11)
  - Supraventricular tachycardia [Recovered/Resolved]
  - Temporomandibular pain and dysfunction syndrome [Unknown]
  - Pain in jaw [Unknown]
  - Bruxism [Unknown]
  - Musculoskeletal stiffness [Unknown]
  - Musculoskeletal stiffness [Unknown]
  - Vaginal discharge [Recovering/Resolving]
  - Diarrhoea [Recovering/Resolving]
  - Fungal infection [Recovering/Resolving]
  - Off label use [Unknown]
  - Inappropriate schedule of product administration [Recovering/Resolving]

NARRATIVE: CASE EVENT DATE: 20250709
